FAERS Safety Report 6587755-5 (Version None)
Quarter: 2010Q1

REPORT INFORMATION
  Report Type: 
  Country: None (occurrence: None)
  Receive Date: 20100217
  Receipt Date: 20100217
  Transmission Date: 20100710
  Serious: Yes (Hospitalization)
  Sender: FDA-Public Use
  Company Number: None

PATIENT
  Age: 20 Year
  Sex: Female
  Weight: 66 kg

DRUGS (1)
  1. LUTERA 1 TAB [Suspect]
     Dosage: 1 TAB DAILY PO
     Route: 048

REACTIONS (2)
  - FLANK PAIN [None]
  - PULMONARY EMBOLISM [None]
